FAERS Safety Report 19831276 (Version 2)
Quarter: 2021Q3

REPORT INFORMATION
  Report Type: Report from Study
  Country: FR (occurrence: FR)
  Receive Date: 20210915
  Receipt Date: 20210924
  Transmission Date: 20211014
  Serious: Yes (Hospitalization)
  Sender: FDA-Public Use
  Company Number: FR-ROCHE-2906689

PATIENT
  Age: 70 Year
  Sex: Male
  Weight: 76 kg

DRUGS (9)
  1. METHYLPREDNISOLONE. [Concomitant]
     Active Substance: METHYLPREDNISOLONE
  2. BEVACIZUMAB. [Suspect]
     Active Substance: BEVACIZUMAB
     Indication: PLEURAL MESOTHELIOMA MALIGNANT
     Dosage: 400 MG/16 ML)??DATE OF LAST ADMINISTRATION BEFORE SAE 16/JUL/2021
     Route: 042
     Dates: start: 20201201
  3. ATEZOLIZUMAB. [Suspect]
     Active Substance: ATEZOLIZUMAB
     Indication: PLEURAL MESOTHELIOMA MALIGNANT
     Dosage: 1200 MG/20 ML?DATE OF LAST ADMINISTRATION BEFORE SAE 16/JUL/2021
     Route: 041
     Dates: start: 20201201
  4. CARBOPLATIN. [Suspect]
     Active Substance: CARBOPLATIN
     Indication: PLEURAL MESOTHELIOMA MALIGNANT
     Dosage: DATE OF LAST ADMINISTRATION BEFORE SAE 18/FEB/2021??AUC 5
     Route: 042
     Dates: start: 20201201
  5. PEMETREXED. [Suspect]
     Active Substance: PEMETREXED
     Indication: PLEURAL MESOTHELIOMA MALIGNANT
     Dosage: DATE OF LAST ADMINISTRATION BEFORE SAE 18/FEB/2021
     Route: 042
     Dates: start: 20201201
  6. CIPROFLOXACINE [Concomitant]
     Active Substance: CIPROFLOXACIN
  7. LASILIX [Concomitant]
     Active Substance: FUROSEMIDE
  8. TAZOCILLINE [Concomitant]
     Active Substance: PIPERACILLIN SODIUM\TAZOBACTAM SODIUM
  9. OXYGEN. [Concomitant]
     Active Substance: OXYGEN

REACTIONS (1)
  - Pneumonia [Not Recovered/Not Resolved]

NARRATIVE: CASE EVENT DATE: 20210817
